FAERS Safety Report 4380764-6 (Version None)
Quarter: 2004Q2

REPORT INFORMATION
  Report Type: 
  Country: None (occurrence: None)
  Receive Date: 20040616
  Receipt Date: 20040519
  Transmission Date: 20050107
  Serious: Yes (Hospitalization)
  Sender: FDA-Public Use
  Company Number: EWC040438965

PATIENT
  Age: 59 Year
  Sex: Female
  Weight: 93 kg

DRUGS (3)
  1. HUMULIN N [Suspect]
     Indication: DIABETES MELLITUS
     Dosage: 46 IU
     Dates: start: 20021112
  2. CONCOR (BISOPROLOL FUMARATE) [Concomitant]
  3. IRUMED (LISINOPRIL) [Concomitant]

REACTIONS (1)
  - DIABETIC RETINOPATHY [None]
